FAERS Safety Report 6525483-2 (Version None)
Quarter: 2010Q1

REPORT INFORMATION
  Report Type: 
  Country: None (occurrence: None)
  Receive Date: 20100104
  Receipt Date: 20091222
  Transmission Date: 20100710
  Serious: Yes (Hospitalization, Other)
  Sender: FDA-Public Use
  Company Number: US-ELI_LILLY_AND_COMPANY-US200912005318

PATIENT
  Sex: Male

DRUGS (9)
  1. FORTEO [Suspect]
     Indication: OSTEOPOROSIS
     Dosage: UNK, DAILY (1/D)
     Dates: start: 20090601, end: 20091214
  2. FORTEO [Suspect]
     Dosage: UNK, DAILY (1/D)
     Dates: start: 20091221
  3. LIPITOR [Concomitant]
  4. VICODIN [Concomitant]
  5. VITAMIN D [Concomitant]
  6. MULTI-VITAMIN [Concomitant]
  7. IRON [Concomitant]
  8. FOLIC ACID [Concomitant]
  9. STOOL SOFTENER [Concomitant]

REACTIONS (2)
  - ACCIDENT [None]
  - HIP FRACTURE [None]
